FAERS Safety Report 8771707 (Version 2)
Quarter: 2013Q1

REPORT INFORMATION
  Report Type: Spontaneous
  Country: US (occurrence: US)
  Receive Date: 20120905
  Receipt Date: 20130319
  Transmission Date: 20140127
  Serious: Yes (Hospitalization)
  Sender: FDA-Public Use
  Company Number: US-009507513-1209USA000937

PATIENT
  Sex: Female
  Weight: 70.3 kg

DRUGS (2)
  1. NUVARING [Suspect]
     Indication: CONTRACEPTION
     Dosage: UNK
     Dates: start: 2006, end: 2012
  2. NUVARING [Suspect]
     Indication: DYSMENORRHOEA

REACTIONS (4)
  - Chest pain [Unknown]
  - Dyspnoea [Unknown]
  - Thrombosis [Unknown]
  - Off label use [Unknown]
